FAERS Safety Report 23567002 (Version 5)
Quarter: 2024Q2

REPORT INFORMATION
  Report Type: Spontaneous
  Country: CA (occurrence: CA)
  Receive Date: 20240226
  Receipt Date: 20240529
  Transmission Date: 20240716
  Serious: Yes (Hospitalization, Other)
  Sender: FDA-Public Use
  Company Number: CA-PFIZER INC-202300298830

PATIENT
  Age: 27 Year
  Sex: Male

DRUGS (16)
  1. RUXIENCE [Suspect]
     Active Substance: RITUXIMAB-PVVR
     Indication: Systemic lupus erythematosus
     Dosage: 1000 MG, DAY 1 AND 15
     Route: 042
     Dates: start: 20230830, end: 20230915
  2. RUXIENCE [Suspect]
     Active Substance: RITUXIMAB-PVVR
     Dosage: 1000 MG, DAY 1 AND 15, EVERY 2 WEEKS
     Route: 042
     Dates: start: 20240313
  3. RUXIENCE [Suspect]
     Active Substance: RITUXIMAB-PVVR
     Dosage: 1000 MG, DAY 1 AND 15, EVERY 2 WEEKS
     Route: 042
     Dates: start: 20240328, end: 20240328
  4. AMLODIPINE [Concomitant]
     Active Substance: AMLODIPINE BESYLATE
     Dosage: 1 DF
  5. ACETAMINOPHEN [Concomitant]
     Active Substance: ACETAMINOPHEN
     Indication: Premedication
     Dosage: UNK
     Dates: start: 20240328, end: 20240328
  6. DIPHENHYDRAMINE [Concomitant]
     Active Substance: DIPHENHYDRAMINE
     Indication: Premedication
     Dosage: UNK
     Dates: start: 20240328, end: 20240328
  7. GABAPENTIN [Concomitant]
     Active Substance: GABAPENTIN
     Dosage: 400 MG (NIGHTLY)
  8. HYDROXYCHLOROQUINE [Concomitant]
     Active Substance: HYDROXYCHLOROQUINE
     Dosage: UNK, 2X/DAY
  9. METOPROLOL [Concomitant]
     Active Substance: METOPROLOL
     Dosage: 25 MG, 2X/DAY(AM AND PM, WILL HOLD AM DOSE ON INFUSION DAY)
  10. METOPROLOL [Concomitant]
     Active Substance: METOPROLOL
     Dosage: 1 DF
  11. METHOTREXATE [Concomitant]
     Active Substance: METHOTREXATE
     Dosage: 15 MG, WEEKLY
     Dates: start: 202401
  12. METHYLPREDNISOLONE [Concomitant]
     Active Substance: METHYLPREDNISOLONE
     Indication: Premedication
     Dosage: UNK
     Dates: start: 20240328, end: 20240328
  13. MYCOPHENOLIC ACID [Concomitant]
     Active Substance: MYCOPHENOLIC ACID
     Dosage: 750 MG, 2X/DAY
  14. PREDNISONE [Concomitant]
     Active Substance: PREDNISONE
     Dosage: 9 MG, DAILY(TAPERING)
  15. RAMIPRIL [Concomitant]
     Active Substance: RAMIPRIL
     Dosage: 5 MG, 2X/DAY(AM AND PM, WILL HOLD AM DOSE ON INFUSION DAY)
  16. RAMIPRIL [Concomitant]
     Active Substance: RAMIPRIL
     Dosage: 1 DF

REACTIONS (2)
  - Pericarditis [Not Recovered/Not Resolved]
  - Off label use [Unknown]

NARRATIVE: CASE EVENT DATE: 20230101
